FAERS Safety Report 23078200 (Version 1)
Quarter: 2023Q4

REPORT INFORMATION
  Report Type: Spontaneous
  Country: NL (occurrence: NL)
  Receive Date: 20231018
  Receipt Date: 20231018
  Transmission Date: 20240109
  Serious: Yes (Other)
  Sender: FDA-Public Use
  Company Number: None

PATIENT
  Age: 67 Year
  Sex: Male
  Weight: 62 kg

DRUGS (2)
  1. BISACODYL [Suspect]
     Active Substance: BISACODYL
     Indication: Colonoscopy
     Dosage: 1 X PER DAG 1 STUK?MSR 5 MG
     Dates: start: 20230716, end: 20230717
  2. MACROGOL/SALTS PDR V DRINK (PLEINVUE) / PLEINVUE POWDER FOR DRINK IN S [Concomitant]
     Dosage: POEDER VOOR DRANK

REACTIONS (1)
  - Colitis ischaemic [Recovered/Resolved]
